FAERS Safety Report 10543510 (Version 2)
Quarter: 2015Q1

REPORT INFORMATION
  Report Type: Spontaneous
  Country: US (occurrence: US)
  Receive Date: 20141027
  Receipt Date: 20150217
  Transmission Date: 20150720
  Serious: No
  Sender: FDA-Public Use
  Company Number: US-PFIZER INC-2014291971

PATIENT
  Age: 80 Year
  Sex: Female
  Weight: 73 kg

DRUGS (11)
  1. PREMARIN [Suspect]
     Active Substance: ESTROGENS, CONJUGATED
     Indication: ATROPHIC VULVOVAGINITIS
     Dosage: UNK
     Dates: start: 201306
  2. HYDROXYZINE [Concomitant]
     Active Substance: HYDROXYZINE\HYDROXYZINE HYDROCHLORIDE
     Dosage: UNK, DAILY
  3. PREMARIN [Suspect]
     Active Substance: ESTROGENS, CONJUGATED
     Indication: VULVOVAGINAL PRURITUS
  4. LABETALOL [Concomitant]
     Active Substance: LABETALOL\LABETALOL HYDROCHLORIDE
     Dosage: UNK, DAILY
  5. FISH OIL [Concomitant]
     Active Substance: FISH OIL
     Dosage: UNK
  6. SPIRIVA [Concomitant]
     Active Substance: TIOTROPIUM BROMIDE MONOHYDRATE
     Dosage: UNK, DAILY
  7. ASA [Concomitant]
     Active Substance: ASPIRIN
     Dosage: 81 MG, DAILY
  8. OMEPRAZOLE. [Concomitant]
     Active Substance: OMEPRAZOLE
     Dosage: UNK, DAILY
  9. DETROL [Concomitant]
     Active Substance: TOLTERODINE TARTRATE
     Dosage: UNK, 1X/DAY
  10. RESTASIS [Concomitant]
     Active Substance: CYCLOSPORINE
     Dosage: 0.05 %, 2X/DAY (Q 12 H)
  11. NASAREL [Concomitant]
     Active Substance: FLUNISOLIDE
     Dosage: UNK, 2X/DAY (2 SPRAY BD)

REACTIONS (3)
  - Vaginal odour [Unknown]
  - Vulvovaginal pain [Unknown]
  - Drug ineffective [Unknown]
